FAERS Safety Report 7608846-3 (Version None)
Quarter: 2011Q3

REPORT INFORMATION
  Report Type: 
  Country: None (occurrence: None)
  Receive Date: 20110713
  Receipt Date: 20110713
  Transmission Date: 20111222
  Serious: Yes (Hospitalization)
  Sender: FDA-Public Use
  Company Number: None

PATIENT
  Age: 57 Year
  Sex: Male
  Weight: 85.4 kg

DRUGS (1)
  1. DISOPYRAMIDE [Suspect]
     Indication: ATRIAL FIBRILLATION
     Dosage: 200 MG QID PO
     Route: 048
     Dates: start: 20110519, end: 20110522

REACTIONS (2)
  - HEPATIC ENZYME INCREASED [None]
  - BLOOD CREATININE INCREASED [None]
